FAERS Safety Report 11075104 (Version 3)
Quarter: 2015Q2

REPORT INFORMATION
  Report Type: Spontaneous
  Country: NL (occurrence: NL)
  Receive Date: 20150429
  Receipt Date: 20150522
  Transmission Date: 20150821
  Serious: Yes (Death)
  Sender: FDA-Public Use
  Company Number: NL-TOLMAR, INC.-2015NL003755

PATIENT
  Sex: Male

DRUGS (4)
  1. ASCAL                              /00002702/ [Concomitant]
     Active Substance: ASPIRIN CALCIUM
  2. METOPROLOL [Concomitant]
     Active Substance: METOPROLOL
  3. PRAVASTATIN [Concomitant]
     Active Substance: PRAVASTATIN\PRAVASTATIN SODIUM
  4. ELIGARD [Suspect]
     Active Substance: LEUPROLIDE ACETATE
     Indication: PROSTATE CANCER
     Dosage: CYCLIC, ONCE EVERY 6 MONTHS
     Route: 058

REACTIONS (1)
  - Death [Fatal]
